FAERS Safety Report 5811626-2 (Version None)
Quarter: 2008Q3

REPORT INFORMATION
  Report Type: 
  Country: None (occurrence: None)
  Receive Date: 20080714
  Receipt Date: 20080704
  Transmission Date: 20090109
  Serious: Yes (Other)
  Sender: FDA-Public Use
  Company Number: 2008AP000273

PATIENT
  Age: 21 Year
  Sex: Female

DRUGS (6)
  1. PAROXETINE HCL [Suspect]
     Indication: DEPRESSION
     Dosage: 20 MG;TAB;PO;QD;   0.5 ML;SYR;PO
     Route: 048
  2. AMITRIPTLINE HYDROCHLORIDE TAB [Concomitant]
  3. TRAZODONE HCL [Concomitant]
  4. CODEINE PHOSPHATE (CODEINE PHOSPHATE) [Concomitant]
  5. ACETAMINOPHEN [Concomitant]
  6. PROPRANOLOL [Concomitant]

REACTIONS (26)
  - AGGRESSION [None]
  - ANXIETY [None]
  - DEPRESSION [None]
  - DIZZINESS [None]
  - DRUG DOSE OMISSION [None]
  - DRUG PRESCRIBING ERROR [None]
  - DRUG WITHDRAWAL SYNDROME [None]
  - EMOTIONAL DISORDER [None]
  - FATIGUE [None]
  - FEAR [None]
  - FRUSTRATION [None]
  - GASTROINTESTINAL DISORDER [None]
  - HALLUCINATION [None]
  - IMPAIRED SELF-CARE [None]
  - INTENTIONAL SELF-INJURY [None]
  - IRRITABILITY [None]
  - MALAISE [None]
  - MOOD SWINGS [None]
  - NAUSEA [None]
  - NIGHTMARE [None]
  - SCRATCH [None]
  - SCREAMING [None]
  - SELF-INJURIOUS IDEATION [None]
  - SUICIDAL IDEATION [None]
  - THINKING ABNORMAL [None]
  - VOMITING [None]
